FAERS Safety Report 6271747-X (Version None)
Quarter: 2009Q3

REPORT INFORMATION
  Report Type: 
  Country: None (occurrence: None)
  Receive Date: 20090717
  Receipt Date: 20090706
  Transmission Date: 20100115
  Serious: Yes (Other)
  Sender: FDA-Public Use
  Company Number: BE-BAYER-200916856GPV

PATIENT
  Age: 52 Year
  Sex: Female

DRUGS (1)
  1. MIRENA [Suspect]
     Indication: DRUG USE FOR UNKNOWN INDICATION
     Route: 015
     Dates: start: 20040210, end: 20090305

REACTIONS (6)
  - ASTHENIA [None]
  - GENITAL HAEMORRHAGE [None]
  - MIGRAINE [None]
  - NAUSEA [None]
  - UTERINE LEIOMYOMA [None]
  - VOMITING [None]
